FAERS Safety Report 8578137-5 (Version None)
Quarter: 2012Q2

REPORT INFORMATION
  Report Type: 
  Country: None (occurrence: None)
  Receive Date: 20120423
  Receipt Date: 20100126
  Transmission Date: 20120825
  Serious: Yes (Other)
  Sender: FDA-Public Use
  Company Number: PHHY2010US02956

PATIENT
  Age: 76 Year
  Sex: Female

DRUGS (9)
  1. LIPITOR [Concomitant]
  2. AMIODARONE [Concomitant]
  3. ZETIA [Concomitant]
  4. METOPROLOL TARTRATE [Concomitant]
  5. RANITIDINE [Concomitant]
  6. FOSAMAX [Concomitant]
  7. LEVOTHYROXINE SODIUM [Concomitant]
  8. EXJADE [Suspect]
     Indication: IRON METABOLISM DISORDER
     Dosage: 750 MG, QD, ORAL
     Route: 048
     Dates: start: 20091130, end: 20091229
  9. EXJADE [Suspect]
     Indication: IRON OVERLOAD
     Dosage: 750 MG, QD, ORAL
     Route: 048
     Dates: start: 20091130, end: 20091229

REACTIONS (3)
  - RENAL FAILURE [None]
  - RENAL DISORDER [None]
  - RENAL INJURY [None]
